FAERS Safety Report 8421070-X (Version None)
Quarter: 2012Q2

REPORT INFORMATION
  Report Type: 
  Country: None (occurrence: None)
  Receive Date: 20120323
  Receipt Date: 20111208
  Transmission Date: 20120825
  Serious: Yes (Other)
  Sender: FDA-Public Use
  Company Number: 163-21880-11121189

PATIENT
  Age: 69 Year
  Sex: Male
  Weight: 76.6579 kg

DRUGS (4)
  1. REVLIMID [Suspect]
     Indication: NON-HODGKIN'S LYMPHOMA
     Dosage: 25 MG, DAILY X 21 DAYS, PO
     Route: 048
     Dates: start: 20111118
  2. ASPIRIN [Concomitant]
  3. PERCOCET [Concomitant]
  4. IBUPROFEN (ADVIL) [Concomitant]

REACTIONS (2)
  - ANAEMIA [None]
  - NEUTROPENIA [None]
